FAERS Safety Report 17580646 (Version 2)
Quarter: 2020Q2

REPORT INFORMATION
  Report Type: Spontaneous
  Country: SE (occurrence: SE)
  Receive Date: 20200325
  Receipt Date: 20200504
  Transmission Date: 20200713
  Serious: Yes (Death, Other)
  Sender: FDA-Public Use
  Company Number: SE-OTSUKA-2020_008119

PATIENT
  Age: 39 Year
  Sex: Female

DRUGS (14)
  1. XEPLION [Suspect]
     Active Substance: PALIPERIDONE PALMITATE
     Indication: PSYCHOTIC DISORDER
     Dosage: 150 MG, EVERY 4 WEEKS
     Route: 065
     Dates: start: 20130521
  2. XEPLION [Suspect]
     Active Substance: PALIPERIDONE PALMITATE
     Dosage: 75 MG, TOTAL
     Route: 065
     Dates: start: 20130521, end: 20130604
  3. PROPAVAN [Concomitant]
     Active Substance: PROPIOMAZINE
     Dosage: 50 MG, QD
     Route: 065
  4. LEVAXIN [Concomitant]
     Active Substance: LEVOTHYROXINE SODIUM
     Dosage: UNK
     Route: 065
     Dates: start: 20170102, end: 20180101
  5. XEPLION [Suspect]
     Active Substance: PALIPERIDONE PALMITATE
     Dosage: 100 MG, EVERY 4 WEEKS
     Route: 065
     Dates: start: 20110919, end: 201305
  6. LEVAXIN [Concomitant]
     Active Substance: LEVOTHYROXINE SODIUM
     Indication: PRODUCT USED FOR UNKNOWN INDICATION
     Dosage: UNK
     Route: 065
     Dates: start: 20131024, end: 20170101
  7. LEVAXIN [Concomitant]
     Active Substance: LEVOTHYROXINE SODIUM
     Dosage: 50 ?G, QD
     Route: 065
     Dates: start: 20180102
  8. THERALEN [Concomitant]
     Active Substance: TRIMEPRAZINE
     Dosage: 0,5-1,0 ML V B.
     Route: 065
  9. METFORMIN [Concomitant]
     Active Substance: METFORMIN HYDROCHLORIDE
     Indication: PRODUCT USED FOR UNKNOWN INDICATION
     Dosage: 1000 MG, QD
     Route: 065
     Dates: start: 20180102
  10. LEVAXIN [Concomitant]
     Active Substance: LEVOTHYROXINE SODIUM
     Dosage: 50 ?G, QD
     Route: 065
     Dates: start: 20130827, end: 20131024
  11. PROPAVAN [Concomitant]
     Active Substance: PROPIOMAZINE
     Indication: PRODUCT USED FOR UNKNOWN INDICATION
     Dosage: UNK, QD (THE NIGHT)
     Route: 065
  12. THERALEN [Concomitant]
     Active Substance: TRIMEPRAZINE
     Indication: PRODUCT USED FOR UNKNOWN INDICATION
     Dosage: UNK, DURING CERTAIN PERIODS
     Route: 065
  13. ABILIFY [Suspect]
     Active Substance: ARIPIPRAZOLE
     Indication: PSYCHOTIC DISORDER
     Dosage: 10 MG, QD
     Route: 065
     Dates: start: 201305
  14. LEVAXIN [Concomitant]
     Active Substance: LEVOTHYROXINE SODIUM
     Dosage: 100 ?G, QD
     Route: 065
     Dates: start: 20180102

REACTIONS (2)
  - Cardiomyopathy [Fatal]
  - Product use in unapproved indication [Unknown]

NARRATIVE: CASE EVENT DATE: 201305
